FAERS Safety Report 13541166 (Version 1)
Quarter: 2017Q2

REPORT INFORMATION
  Report Type: Spontaneous
  Country: CH (occurrence: CH)
  Receive Date: 20170512
  Receipt Date: 20170512
  Transmission Date: 20170830
  Serious: Yes (Other)
  Sender: FDA-Public Use
  Company Number: PHHY2017CH066259

PATIENT
  Age: 6 Year
  Sex: Male

DRUGS (1)
  1. CARBAMAZEPINE. [Suspect]
     Active Substance: CARBAMAZEPINE
     Indication: EPILEPSY
     Dosage: 10 MG/KG, QD
     Route: 065

REACTIONS (3)
  - Therapeutic response decreased [Unknown]
  - Obsessive-compulsive disorder [Unknown]
  - Compulsive cheek biting [Unknown]
